FAERS Safety Report 4691188-6 (Version None)
Quarter: 2005Q2

REPORT INFORMATION
  Report Type: 
  Country: None (occurrence: None)
  Receive Date: 20050614
  Receipt Date: 20050531
  Transmission Date: 20051028
  Serious: Yes (Hospitalization)
  Sender: FDA-Public Use
  Company Number: 2005BI006963

PATIENT
  Age: 62 Year
  Sex: Female

DRUGS (21)
  1. AVONEX [Suspect]
     Indication: MULTIPLE SCLEROSIS
     Dosage: 30 UG;QW;IM
     Route: 030
     Dates: start: 20020301
  2. SINEMET CR [Concomitant]
  3. FLORICET [Concomitant]
  4. FLAGYL [Concomitant]
  5. LORTAB [Concomitant]
  6. AMBIEN [Concomitant]
  7. ACIPHEX [Concomitant]
  8. OXYGEN [Concomitant]
  9. MIRAPEX [Concomitant]
  10. PROVIGIL [Concomitant]
  11. COLACE [Concomitant]
  12. LASIX [Concomitant]
  13. XANAX [Concomitant]
  14. PROVENTIL [Concomitant]
  15. ROBITITUSSIN A-C [Concomitant]
  16. PROZAC [Concomitant]
  17. POTASSIUM CHLORIDE [Concomitant]
  18. REQUIP [Concomitant]
  19. FLOVENT [Concomitant]
  20. ELDEPRYL [Concomitant]
  21. ESTRADERM [Concomitant]

REACTIONS (1)
  - PNEUMONIA ASPIRATION [None]
